FAERS Safety Report 8013690-1 (Version None)
Quarter: 2011Q4

REPORT INFORMATION
  Report Type: 
  Country: None (occurrence: None)
  Receive Date: 20111229
  Receipt Date: 20111215
  Transmission Date: 20120403
  Serious: Yes (Disabling)
  Sender: FDA-Public Use
  Company Number: FR-CELGENEUS-056-21880-11122065

PATIENT
  Sex: Male

DRUGS (3)
  1. ATORVASTATIN CALCIUM [Concomitant]
     Route: 065
  2. REVLIMID [Suspect]
     Indication: MULTIPLE MYELOMA
     Route: 048
  3. PANTOPRAZOLE [Concomitant]
     Route: 065

REACTIONS (1)
  - RECTAL CANCER [None]
